FAERS Safety Report 16968928 (Version 1)
Quarter: 2019Q4

REPORT INFORMATION
  Report Type: Report from Study
  Country: US (occurrence: US)
  Receive Date: 20191029
  Receipt Date: 20191029
  Transmission Date: 20200122
  Serious: Yes (Other)
  Sender: FDA-Public Use
  Company Number: US-ROCHE-1971979

PATIENT
  Age: 76 Year
  Sex: Male
  Weight: 58.11 kg

DRUGS (11)
  1. ESBRIET [Suspect]
     Active Substance: PIRFENIDONE
     Route: 048
     Dates: start: 201707
  2. SIMVASTATIN. [Concomitant]
     Active Substance: SIMVASTATIN
     Indication: BLOOD CHOLESTEROL
     Dosage: TAKING FOR A FEW YEARS ONGOING: YES
     Route: 048
  3. COLLAGEN [Concomitant]
     Active Substance: COLLAGEN
     Dosage: TAKING FOR A FEW YEARS, ONGOING: YES
     Route: 048
  4. PANTOPRAZOLE [Concomitant]
     Active Substance: PANTOPRAZOLE
     Dosage: TAKING FOR A FEW YEARS, ONGOING: YES
     Route: 048
  5. ESBRIET [Suspect]
     Active Substance: PIRFENIDONE
     Indication: IDIOPATHIC PULMONARY FIBROSIS
     Route: 048
     Dates: start: 20170727
  6. LORTAB [Concomitant]
     Active Substance: ACETAMINOPHEN\HYDROCODONE BITARTRATE
     Indication: INTERVERTEBRAL DISC DEGENERATION
     Dosage: 5/325MG, TAKING FORA FEW MONTHS ONGOING: YES
     Route: 048
  7. ESBRIET [Suspect]
     Active Substance: PIRFENIDONE
     Indication: IDIOPATHIC PULMONARY FIBROSIS
     Dosage: THEN 2 TABS 3 TIMES DAILY FOR 1 WEEK
     Route: 048
  8. LORTAB [Concomitant]
     Active Substance: ACETAMINOPHEN\HYDROCODONE BITARTRATE
     Indication: BACK PAIN
  9. ESBRIET [Suspect]
     Active Substance: PIRFENIDONE
     Dosage: 267 MG; THEN 2 TABS 3 TIMES DAILY FOR 1 WEEK
     Route: 048
  10. ESBRIET [Suspect]
     Active Substance: PIRFENIDONE
     Dosage: 267 MG; THEN 3 TABS 3 TIMES DAILY
     Route: 048
  11. LOSARTAN POTASSIUM. [Concomitant]
     Active Substance: LOSARTAN POTASSIUM
     Indication: BLOOD PRESSURE MEASUREMENT
     Dosage: TAKING FOR FEW YEARS, ONGOING: YES
     Route: 048

REACTIONS (7)
  - Nausea [Unknown]
  - Vomiting [Recovered/Resolved]
  - Product dose omission [Unknown]
  - Gastroenteritis viral [Unknown]
  - Dyspepsia [Unknown]
  - Abdominal discomfort [Not Recovered/Not Resolved]
  - Headache [Unknown]

NARRATIVE: CASE EVENT DATE: 20170728
